FAERS Safety Report 24268959 (Version 2)
Quarter: 2025Q3

REPORT INFORMATION
  Report Type: Spontaneous
  Country: EU (occurrence: EU)
  Receive Date: 20240830
  Receipt Date: 20250911
  Transmission Date: 20251021
  Serious: Yes (Other)
  Sender: ORGANON
  Company Number: EU-TEVA-VS-3234130

PATIENT
  Age: 52 Year
  Sex: Female

DRUGS (37)
  1. MONTELUKAST SODIUM [Suspect]
     Active Substance: MONTELUKAST SODIUM
     Indication: Anaphylactic shock
     Route: 065
  2. MONTELUKAST SODIUM [Suspect]
     Active Substance: MONTELUKAST SODIUM
     Indication: Prophylaxis
  3. FAMOTIDINE [Suspect]
     Active Substance: FAMOTIDINE
     Indication: Anaphylactic shock
     Route: 065
  4. FAMOTIDINE [Suspect]
     Active Substance: FAMOTIDINE
     Indication: Prophylaxis
  5. DEXAMETHASONE [Suspect]
     Active Substance: DEXAMETHASONE
     Indication: Anaphylactic shock
     Route: 065
  6. DEXAMETHASONE [Suspect]
     Active Substance: DEXAMETHASONE
     Indication: Plasma cell myeloma
     Route: 065
  7. DEXAMETHASONE [Suspect]
     Active Substance: DEXAMETHASONE
     Indication: Prophylaxis
     Route: 065
  8. DEXAMETHASONE [Suspect]
     Active Substance: DEXAMETHASONE
     Indication: Immunosuppressant drug therapy
     Route: 065
  9. DEXAMETHASONE [Suspect]
     Active Substance: DEXAMETHASONE
     Route: 048
  10. DEXAMETHASONE [Suspect]
     Active Substance: DEXAMETHASONE
     Route: 065
  11. ISATUXIMAB [Suspect]
     Active Substance: ISATUXIMAB
     Indication: Plasma cell myeloma
     Route: 042
  12. ISATUXIMAB [Suspect]
     Active Substance: ISATUXIMAB
     Indication: Immunosuppressant drug therapy
     Route: 042
  13. ISATUXIMAB [Suspect]
     Active Substance: ISATUXIMAB
     Route: 065
  14. ISATUXIMAB [Suspect]
     Active Substance: ISATUXIMAB
     Route: 065
  15. ISATUXIMAB [Suspect]
     Active Substance: ISATUXIMAB
     Route: 042
  16. ISATUXIMAB [Suspect]
     Active Substance: ISATUXIMAB
     Route: 042
  17. POMALIDOMIDE [Suspect]
     Active Substance: POMALIDOMIDE
     Indication: Plasma cell myeloma
     Route: 065
  18. CARFILZOMIB [Suspect]
     Active Substance: CARFILZOMIB
     Indication: Plasma cell myeloma
     Route: 065
  19. CARFILZOMIB [Suspect]
     Active Substance: CARFILZOMIB
     Indication: Immunosuppressant drug therapy
     Route: 042
  20. LENALIDOMIDE [Suspect]
     Active Substance: LENALIDOMIDE
     Indication: Plasma cell myeloma
     Route: 048
  21. LENALIDOMIDE [Suspect]
     Active Substance: LENALIDOMIDE
     Indication: Immunosuppressant drug therapy
     Route: 065
  22. LENALIDOMIDE [Suspect]
     Active Substance: LENALIDOMIDE
     Route: 048
  23. LEVOCETIRIZINE [Suspect]
     Active Substance: LEVOCETIRIZINE
     Indication: Anaphylactic shock
     Route: 065
  24. LEVOCETIRIZINE [Suspect]
     Active Substance: LEVOCETIRIZINE
     Indication: Prophylaxis
  25. MELPHALAN [Concomitant]
     Active Substance: MELPHALAN
     Indication: Plasma cell myeloma
     Route: 042
  26. MELPHALAN [Concomitant]
     Active Substance: MELPHALAN
     Indication: Immunosuppressant drug therapy
  27. MONTELUKAST SODIUM [Concomitant]
     Active Substance: MONTELUKAST SODIUM
     Route: 065
  28. CLEMASTINE [Concomitant]
     Active Substance: CLEMASTINE
     Indication: Flushing
     Route: 042
  29. CLEMASTINE [Concomitant]
     Active Substance: CLEMASTINE
     Indication: Nausea
  30. CLEMASTINE [Concomitant]
     Active Substance: CLEMASTINE
     Indication: Tachycardia
  31. CLEMASTINE [Concomitant]
     Active Substance: CLEMASTINE
     Indication: Cough
  32. CLEMASTINE [Concomitant]
     Active Substance: CLEMASTINE
     Indication: Dyspnoea
  33. PREDNISOLONE [Concomitant]
     Active Substance: PREDNISOLONE
     Indication: Flushing
     Route: 042
  34. PREDNISOLONE [Concomitant]
     Active Substance: PREDNISOLONE
     Indication: Nausea
  35. PREDNISOLONE [Concomitant]
     Active Substance: PREDNISOLONE
     Indication: Tachycardia
  36. PREDNISOLONE [Concomitant]
     Active Substance: PREDNISOLONE
     Indication: Cough
  37. PREDNISOLONE [Concomitant]
     Active Substance: PREDNISOLONE
     Indication: Dyspnoea

REACTIONS (11)
  - Anaphylactic shock [Recovered/Resolved]
  - Drug ineffective [Unknown]
  - Plasma cell myeloma [Unknown]
  - Nausea [Recovered/Resolved]
  - Tachycardia [Recovered/Resolved]
  - Cough [Recovered/Resolved]
  - Nasal obstruction [Recovered/Resolved]
  - Dyspnoea [Recovered/Resolved]
  - Dizziness [Recovered/Resolved]
  - Erythema [Recovered/Resolved]
  - Flushing [Recovered/Resolved]
